FAERS Safety Report 21480091 (Version 1)
Quarter: 2022Q4

REPORT INFORMATION
  Report Type: Report from Study
  Country: US (occurrence: US)
  Receive Date: 20221019
  Receipt Date: 20221019
  Transmission Date: 20230113
  Serious: Yes (Death, Other)
  Sender: FDA-Public Use
  Company Number: US-BRISTOL-MYERS SQUIBB COMPANY-2022-123589

PATIENT
  Age: 72 Year
  Sex: Male
  Weight: 81.92 kg

DRUGS (1)
  1. POMALYST [Suspect]
     Active Substance: POMALIDOMIDE
     Indication: Product used for unknown indication
     Dosage: DAILY 21 DAYS OF EVERY 28 DAYS
     Route: 048
     Dates: start: 202204

REACTIONS (1)
  - Death [Fatal]
